FAERS Safety Report 6782052-7 (Version None)
Quarter: 2010Q2

REPORT INFORMATION
  Report Type: 
  Country: None (occurrence: None)
  Receive Date: 20100621
  Receipt Date: 20100616
  Transmission Date: 20101027
  Serious: Yes (Other)
  Sender: FDA-Public Use
  Company Number: B0634168A

PATIENT
  Sex: Male

DRUGS (7)
  1. ROPINIROLE [Suspect]
     Indication: PARKINSON'S DISEASE
     Dates: start: 20030529, end: 20070401
  2. MADOPAR [Concomitant]
  3. ROTIGOTINE [Concomitant]
  4. AMANTADINE HCL [Concomitant]
  5. CO-BENELDOPA [Concomitant]
  6. SELEGILINE [Concomitant]
  7. APOMORPHINE [Concomitant]

REACTIONS (7)
  - ANXIETY [None]
  - DEPRESSION [None]
  - FATIGUE [None]
  - IMPULSIVE BEHAVIOUR [None]
  - INSOMNIA [None]
  - OBSESSIVE-COMPULSIVE DISORDER [None]
  - SUICIDAL IDEATION [None]
